FAERS Safety Report 25378756 (Version 1)
Quarter: 2025Q2

REPORT INFORMATION
  Report Type: Spontaneous
  Country: US (occurrence: None)
  Receive Date: 20250530
  Receipt Date: 20250530
  Transmission Date: 20250717
  Serious: Yes (Death, Hospitalization)
  Sender: FDA-CTU
  Company Number: None

PATIENT
  Age: 50 Year
  Sex: Male
  Weight: 120 kg

DRUGS (2)
  1. NIVOLUMAB [Suspect]
     Active Substance: NIVOLUMAB
  2. CABOZANTINIB [Suspect]
     Active Substance: CABOZANTINIB

REACTIONS (9)
  - Sepsis [None]
  - Large intestine perforation [None]
  - Abscess [None]
  - Oedema [None]
  - Hypophagia [None]
  - Gait disturbance [None]
  - Dizziness [None]
  - Back pain [None]
  - Neck pain [None]

NARRATIVE: CASE EVENT DATE: 20250520
